FAERS Safety Report 18705639 (Version 4)
Quarter: 2021Q1

REPORT INFORMATION
  Report Type: Report from Study
  Country: CA (occurrence: CA)
  Receive Date: 20210106
  Receipt Date: 20210225
  Transmission Date: 20210419
  Serious: Yes (Hospitalization, Other)
  Sender: FDA-Public Use
  Company Number: CA-JNJFOC-20200806185

PATIENT
  Age: 60 Year
  Sex: Female
  Weight: 69 kg

DRUGS (5)
  1. REMICADE [Suspect]
     Active Substance: INFLIXIMAB
     Indication: CROHN^S DISEASE
     Dosage: INFUSED ON 17?SEP?2020, 02?NOV?2020
     Route: 042
     Dates: start: 20170316
  2. REMICADE [Suspect]
     Active Substance: INFLIXIMAB
     Route: 042
  3. AZATHIOPRINE. [Concomitant]
     Active Substance: AZATHIOPRINE
     Indication: PRODUCT USED FOR UNKNOWN INDICATION
     Route: 065
  4. REMICADE [Suspect]
     Active Substance: INFLIXIMAB
     Route: 042
  5. AZATHIOPRINE. [Concomitant]
     Active Substance: AZATHIOPRINE
     Dosage: REDUCED BY 50MG
     Route: 065

REACTIONS (8)
  - Ankle fracture [Unknown]
  - Hernia [Recovering/Resolving]
  - Clostridium difficile infection [Recovered/Resolved]
  - Gastrointestinal disorder [Unknown]
  - Wound [Recovered/Resolved]
  - Foot fracture [Unknown]
  - Post procedural infection [Recovered/Resolved]
  - Drug level increased [Unknown]

NARRATIVE: CASE EVENT DATE: 202007
